FAERS Safety Report 15542591 (Version 1)
Quarter: 2018Q4

REPORT INFORMATION
  Report Type: Spontaneous
  Country: CA (occurrence: CA)
  Receive Date: 20181023
  Receipt Date: 20181023
  Transmission Date: 20190205
  Serious: Yes (Other)
  Sender: FDA-Public Use
  Company Number: CA-GALDERMA-CA18043280

PATIENT
  Age: 74 Year
  Sex: Female
  Weight: 85.35 kg

DRUGS (2)
  1. ROSIVER [Concomitant]
     Indication: PRODUCT USED FOR UNKNOWN INDICATION
     Route: 061
  2. APPRILON [Suspect]
     Active Substance: DOXYCYCLINE
     Indication: ROSACEA
     Route: 048

REACTIONS (3)
  - Choking sensation [Recovering/Resolving]
  - Throat irritation [Recovering/Resolving]
  - Pain in extremity [Recovering/Resolving]
